FAERS Safety Report 6150996-5 (Version None)
Quarter: 2009Q2

REPORT INFORMATION
  Report Type: 
  Country: None (occurrence: None)
  Receive Date: 20090410
  Receipt Date: 20090216
  Transmission Date: 20091009
  Serious: No
  Sender: FDA-Public Use
  Company Number: A0767474A

PATIENT
  Age: 41 Year
  Sex: Female

DRUGS (5)
  1. TYKERB [Suspect]
     Indication: BREAST CANCER
     Dosage: 5TAB PER DAY
     Route: 048
     Dates: start: 20090128
  2. EFFEXOR [Concomitant]
     Dosage: 150MG PER DAY
  3. CYCLOPHOSPHAMIDE [Concomitant]
     Dosage: 50MG UNKNOWN
  4. METHOTREXATE [Concomitant]
     Dosage: 2.5MG TWO TIMES PER WEEK
  5. CLONAZEPAM [Concomitant]

REACTIONS (3)
  - ABDOMINAL PAIN UPPER [None]
  - DIARRHOEA [None]
  - NAUSEA [None]
